FAERS Safety Report 6692021-3 (Version None)
Quarter: 2010Q2

REPORT INFORMATION
  Report Type: 
  Country: None (occurrence: None)
  Receive Date: 20100422
  Receipt Date: 20100420
  Transmission Date: 20101027
  Serious: Yes (Hospitalization)
  Sender: FDA-Public Use
  Company Number: IT-ROCHE-698241

PATIENT
  Sex: Male

DRUGS (2)
  1. ROCEPHIN [Suspect]
     Indication: HYPERPYREXIA
     Route: 030
     Dates: start: 20100414, end: 20100414
  2. NOVALGINA [Concomitant]
     Indication: HYPERPYREXIA
     Route: 065

REACTIONS (1)
  - DYSHIDROSIS [None]
